FAERS Safety Report 13633257 (Version 1)
Quarter: 2017Q2

REPORT INFORMATION
  Report Type: Report from Study
  Country: FR (occurrence: FR)
  Receive Date: 20170609
  Receipt Date: 20170609
  Transmission Date: 20170830
  Serious: Yes (Hospitalization)
  Sender: FDA-Public Use
  Company Number: FR-ROCHE-1931090

PATIENT
  Age: 60 Year
  Sex: Female
  Weight: 80 kg

DRUGS (12)
  1. BEVACIZUMAB [Suspect]
     Active Substance: BEVACIZUMAB
     Dosage: DATE OF LAST DOSE PRIOR TO SAE: 20/APR/2017?CUMULATIVE DOSE SINCE THE FIRST ADMINISTRATION: 14490 MG
     Route: 041
     Dates: end: 20170420
  2. FEMARA [Suspect]
     Active Substance: LETROZOLE
     Indication: BREAST CANCER
     Route: 048
  3. ZOLMITRIPTAN. [Concomitant]
     Active Substance: ZOLMITRIPTAN
     Route: 065
  4. BEVACIZUMAB [Suspect]
     Active Substance: BEVACIZUMAB
     Dosage: DATE OF LAST DOSE PRIOR TO SAE: 20/APR/2017?CUMULATIVE DOSE SINCE THE FIRST ADMINISTRATION: 14490 MG
     Route: 041
     Dates: start: 20160829
  5. TAXOL [Suspect]
     Active Substance: PACLITAXEL
     Indication: BREAST CANCER METASTATIC
     Dosage: DATE OF LAST DOSE PRIOR TO SAE: 04/AUG/2016?CUMULATIVE DOSE SINCE THE FIRST ADMINISTRATION: 4400 MG
     Route: 065
     Dates: start: 20151124
  6. AMLOR [Concomitant]
     Active Substance: AMLODIPINE BESYLATE
     Route: 048
  7. PAROXETINE. [Concomitant]
     Active Substance: PAROXETINE
  8. PARACETAMOL [Concomitant]
     Active Substance: ACETAMINOPHEN
  9. BEVACIZUMAB [Suspect]
     Active Substance: BEVACIZUMAB
     Indication: BREAST CANCER METASTATIC
     Dosage: DATE OF LAST DOSE PRIOR TO SAE: 20/APR/2017?CUMULATIVE DOSE SINCE THE FIRST ADMINISTRATION: 14490 MG
     Route: 041
     Dates: start: 20151124
  10. OMEPRAZOLE. [Concomitant]
     Active Substance: OMEPRAZOLE
     Route: 065
  11. AMLOR [Concomitant]
     Active Substance: AMLODIPINE BESYLATE
     Route: 065
  12. LETROZOLE. [Concomitant]
     Active Substance: LETROZOLE
     Dosage: LETROZOLE 2.5 MG ONCE IN A DAY (1-0-0)
     Route: 065

REACTIONS (5)
  - Ischaemic stroke [Recovered/Resolved]
  - Speech disorder [Recovered/Resolved]
  - Visual impairment [Recovered/Resolved]
  - Hypertension [Recovered/Resolved]
  - Photophobia [Recovered/Resolved]

NARRATIVE: CASE EVENT DATE: 20170503
